FAERS Safety Report 6508331-6 (Version None)
Quarter: 2009Q4

REPORT INFORMATION
  Report Type: 
  Country: None (occurrence: None)
  Receive Date: 20091221
  Receipt Date: 20081114
  Transmission Date: 20100525
  Serious: No
  Sender: FDA-Public Use
  Company Number: US-ASTRAZENECA-2008UW15515

PATIENT
  Age: 58 Year
  Sex: Female
  Weight: 59 kg

DRUGS (2)
  1. CRESTOR [Suspect]
     Indication: HYPERCHOLESTEROLAEMIA
     Route: 048
  2. THERAPY UNSPECIFIED [Suspect]
     Dates: end: 20081001

REACTIONS (2)
  - ABNORMAL FAECES [None]
  - CONSTIPATION [None]
